FAERS Safety Report 14839987 (Version 3)
Quarter: 2018Q2

REPORT INFORMATION
  Report Type: Other
  Country: DE (occurrence: DE)
  Receive Date: 20180503
  Receipt Date: 20180510
  Transmission Date: 20180711
  Serious: Yes (Other)
  Sender: FDA-Public Use
  Company Number: DE-DEXPHARM-20180314

PATIENT
  Age: 30 Year
  Sex: Female

DRUGS (6)
  1. DICLOFENAC [Suspect]
     Active Substance: DICLOFENAC
  2. LORAZEPAM. [Suspect]
     Active Substance: LORAZEPAM
  3. 3,4-METHYLENEDIOXYPYROVALERONE [Suspect]
     Active Substance: METHYLENEDIOXYPYROVALERONE HYDROCHLORIDE
  4. QUETIAPINE. [Suspect]
     Active Substance: QUETIAPINE
  5. OLANZAPINE. [Suspect]
     Active Substance: OLANZAPINE
  6. PARACETAMOL [Suspect]
     Active Substance: ACETAMINOPHEN

REACTIONS (4)
  - Confusional state [Unknown]
  - Homicide [Unknown]
  - Toxicity to various agents [Unknown]
  - Memory impairment [Unknown]
